FAERS Safety Report 9850775 (Version 1)
Quarter: 2014Q1

REPORT INFORMATION
  Report Type: Spontaneous
  Country: US (occurrence: US)
  Receive Date: 20140128
  Receipt Date: 20140128
  Transmission Date: 20141002
  Serious: Yes (Other)
  Sender: FDA-Public Use
  Company Number: US-TEVA-389412USA

PATIENT
  Sex: Male

DRUGS (6)
  1. AMIODARONE [Suspect]
     Indication: ATRIAL FIBRILLATION
     Dosage: 200 MILLIGRAM DAILY; STARTED 7-9 YEARS AGO; 1/2 200 MG TABLET TWICE/DAY
  2. METOPROLOL [Concomitant]
  3. ACETYLSALICYLIC ACID [Concomitant]
     Dosage: BABY ASPIRIN
  4. EZETIMIBE [Concomitant]
  5. VALSARTAN [Concomitant]
  6. ALPRAZOLAM [Concomitant]
     Dosage: 1/2 TABLET PRN

REACTIONS (2)
  - Pulmonary toxicity [Unknown]
  - Chest pain [Unknown]
